FAERS Safety Report 6469288-X (Version None)
Quarter: 2009Q4

REPORT INFORMATION
  Report Type: 
  Country: None (occurrence: None)
  Receive Date: 20091203
  Receipt Date: 20071224
  Transmission Date: 20100525
  Serious: Yes (Hospitalization)
  Sender: FDA-Public Use
  Company Number: DE-ELI_LILLY_AND_COMPANY-DE200708004977

PATIENT
  Sex: Female
  Weight: 68 kg

DRUGS (9)
  1. CYMBALTA [Suspect]
     Indication: PAIN
     Dosage: 60 MG, DAILY (1/D)
     Route: 048
     Dates: start: 20070216, end: 20070701
  2. NOVALGIN [Concomitant]
     Indication: POLYARTHRITIS
     Dosage: 0.25 UNK, UNK
     Route: 048
  3. ASPIRIN [Concomitant]
     Dosage: 100 MG, DAILY (1/D) IN AFTERNOON
  4. PANTOZOL [Concomitant]
     Dosage: 20 MG, EACH EVENING
  5. DECORTIN [Concomitant]
     Dosage: 10 MG, EACH MORNING
  6. BISOPROLOL [Concomitant]
     Dosage: 2.5 MG, EACH MORNING
  7. METHOTREXATE [Concomitant]
     Indication: POLYARTHRITIS
     Dosage: 10 MG, WEEKLY (1/W) ON SATURDAY
     Route: 058
     Dates: start: 20070321
  8. FOSAMAX [Concomitant]
     Dosage: 70 MG, WEEKLY (1/W) ON SUNDAY
  9. BONDIOL [Concomitant]
     Dosage: 0.25 MG, UNK
     Route: 048

REACTIONS (9)
  - CORONARY ARTERY DISEASE [None]
  - DYSKINESIA [None]
  - DYSPHAGIA [None]
  - GENERAL PHYSICAL HEALTH DETERIORATION [None]
  - HYPOAESTHESIA [None]
  - MUSCLE SPASMS [None]
  - SENILE OSTEOPOROSIS [None]
  - SPEECH DISORDER [None]
  - URINARY TRACT INFECTION [None]
